FAERS Safety Report 18205585 (Version 2)
Quarter: 2020Q4

REPORT INFORMATION
  Report Type: Report from Study
  Country: BR (occurrence: BR)
  Receive Date: 20200827
  Receipt Date: 20201222
  Transmission Date: 20210113
  Serious: Yes (Other)
  Sender: FDA-Public Use
  Company Number: PHHY2019BR049629

PATIENT
  Age: 59 Year
  Sex: Male
  Weight: 102 kg

DRUGS (4)
  1. COSENTYX [Suspect]
     Active Substance: SECUKINUMAB
     Indication: PSORIATIC ARTHROPATHY
     Dosage: 300 MG, QMO
     Route: 058
     Dates: start: 20181109
  2. FOLIC ACID. [Concomitant]
     Active Substance: FOLIC ACID
     Indication: PRODUCT USED FOR UNKNOWN INDICATION
     Dosage: 1 DF, UNK
     Route: 065
  3. COSENTYX [Suspect]
     Active Substance: SECUKINUMAB
     Dosage: 300 MG, QMO
     Route: 058
     Dates: start: 20190207
  4. COSENTYX [Suspect]
     Active Substance: SECUKINUMAB
     Dosage: 300 MG, UNKNOWN
     Route: 065
     Dates: start: 20200807

REACTIONS (22)
  - Grip strength decreased [Not Recovered/Not Resolved]
  - Skin atrophy [Not Recovered/Not Resolved]
  - Skin exfoliation [Not Recovered/Not Resolved]
  - Hyperkeratosis [Not Recovered/Not Resolved]
  - Concomitant disease aggravated [Not Recovered/Not Resolved]
  - Diabetic metabolic decompensation [Not Recovered/Not Resolved]
  - Skin lesion [Recovering/Resolving]
  - Pain in extremity [Not Recovered/Not Resolved]
  - Skin haemorrhage [Not Recovered/Not Resolved]
  - Sensitive skin [Not Recovered/Not Resolved]
  - Blood triglycerides [Unknown]
  - Peripheral swelling [Recovering/Resolving]
  - Blood count abnormal [Unknown]
  - Psoriatic arthropathy [Not Recovered/Not Resolved]
  - Skin fissures [Not Recovered/Not Resolved]
  - Ear injury [Not Recovered/Not Resolved]
  - Limb injury [Not Recovered/Not Resolved]
  - Arthralgia [Not Recovered/Not Resolved]
  - Wound [Not Recovered/Not Resolved]
  - Dry skin [Not Recovered/Not Resolved]
  - Limb discomfort [Not Recovered/Not Resolved]
  - Psoriasis [Not Recovered/Not Resolved]

NARRATIVE: CASE EVENT DATE: 201912
